FAERS Safety Report 4694473-7 (Version None)
Quarter: 2005Q2

REPORT INFORMATION
  Report Type: 
  Country: None (occurrence: None)
  Receive Date: 20050614
  Receipt Date: 20050405
  Transmission Date: 20051028
  Serious: No
  Sender: FDA-Public Use
  Company Number: USA050494896

PATIENT
  Age: 73 Year
  Sex: Male

DRUGS (4)
  1. CIALIS [Suspect]
     Indication: ERECTILE DYSFUNCTION
     Dosage: 20 MG/ 1 AS NEEDED
     Dates: start: 20050404
  2. GLYBURIDE [Concomitant]
  3. GLUCOPHAGE [Concomitant]
  4. VIAGRA [Concomitant]

REACTIONS (1)
  - DRUG INEFFECTIVE [None]
